FAERS Safety Report 11475322 (Version 1)
Quarter: 2015Q3

REPORT INFORMATION
  Report Type: Spontaneous
  Country: US (occurrence: US)
  Receive Date: 20150909
  Receipt Date: 20150909
  Transmission Date: 20151125
  Serious: No
  Sender: FDA-Public Use
  Company Number: US-LEO PHARMA-236817

PATIENT
  Age: 59 Year
  Sex: Male

DRUGS (1)
  1. PICATO [Suspect]
     Active Substance: INGENOL MEBUTATE
     Indication: ACTINIC KERATOSIS

REACTIONS (4)
  - Application site erythema [Recovered/Resolved]
  - Application site oedema [Recovered/Resolved]
  - Periorbital oedema [Recovered/Resolved]
  - Incorrect drug administration duration [Unknown]
